FAERS Safety Report 4819210-4 (Version None)
Quarter: 2005Q4

REPORT INFORMATION
  Report Type: 
  Country: None (occurrence: None)
  Receive Date: 20051103
  Receipt Date: 20051024
  Transmission Date: 20060501
  Serious: Yes (Hospitalization)
  Sender: FDA-Public Use
  Company Number: FR-GLAXOSMITHKLINE-B0398261B

PATIENT
  Sex: Female
  Weight: 2.6 kg

DRUGS (5)
  1. DEROXAT [Suspect]
     Dosage: 20MG PER DAY
     Dates: start: 20000401, end: 20050530
  2. DAFLON [Suspect]
     Dosage: 2UNIT PER DAY
     Dates: start: 20050406, end: 20050504
  3. MAGNE B6 [Suspect]
     Dates: start: 20050604
  4. DOLIPRANE [Concomitant]
  5. NIFEDIPINE [Concomitant]
     Dates: start: 20050605, end: 20050607

REACTIONS (3)
  - DRUG EXPOSURE DURING PREGNANCY [None]
  - HYPERCALCAEMIA [None]
  - PREMATURE BABY [None]
